FAERS Safety Report 7059831-4 (Version None)
Quarter: 2010Q4

REPORT INFORMATION
  Report Type: 
  Country: None (occurrence: None)
  Receive Date: 20101025
  Receipt Date: 20101013
  Transmission Date: 20110411
  Serious: Yes (Other)
  Sender: FDA-Public Use
  Company Number: US-PFIZER INC-2010130836

PATIENT
  Sex: Female

DRUGS (4)
  1. LYRICA [Suspect]
     Indication: GENERALISED ANXIETY DISORDER
     Dosage: 50 MG, 2X/DAY
  2. LYRICA [Suspect]
     Indication: ABDOMINAL PAIN UPPER
  3. KLONOPIN [Concomitant]
     Dosage: 1 MG, 2X/DAY
  4. ZYRTEC [Concomitant]
     Indication: MYCOTIC ALLERGY
     Dosage: UNK

REACTIONS (3)
  - CONSTIPATION [None]
  - NERVOUS SYSTEM DISORDER [None]
  - WEIGHT INCREASED [None]
